FAERS Safety Report 17242804 (Version 1)
Quarter: 2020Q1

REPORT INFORMATION
  Report Type: Spontaneous
  Country: US (occurrence: US)
  Receive Date: 20200107
  Receipt Date: 20200107
  Transmission Date: 20200409
  Serious: No
  Sender: FDA-Public Use
  Company Number: US-EMD SERONO-E2B_90073380

PATIENT

DRUGS (2)
  1. MAVENCLAD [Suspect]
     Active Substance: CLADRIBINE
     Indication: MULTIPLE SCLEROSIS
     Dosage: DISCONTINUING TREATMENT DURING A TREATMENT CYCLE (UNSPECIFIED).
  2. MAVENCLAD [Suspect]
     Active Substance: CLADRIBINE
     Dosage: RE-STARTED TREATMENT CYCLE AT A FURTHER DATE THAN INDICATED.

REACTIONS (1)
  - Treatment noncompliance [Unknown]
